FAERS Safety Report 15369382 (Version 1)
Quarter: 2018Q3

REPORT INFORMATION
  Report Type: Report from Study
  Country: CA (occurrence: CA)
  Receive Date: 20180911
  Receipt Date: 20180911
  Transmission Date: 20181010
  Serious: Yes (Hospitalization)
  Sender: FDA-Public Use
  Company Number: CA-ROCHE-2136029

PATIENT
  Age: 55 Year
  Sex: Female

DRUGS (4)
  1. SOLU?MEDROL [Suspect]
     Active Substance: METHYLPREDNISOLONE SODIUM SUCCINATE
     Indication: MULTIPLE SCLEROSIS
     Dosage: REACTION: FEELING MORE IMPATIENT, HAS A CHANGING MOOD, CRIES WITHOUT REASON
     Route: 042
     Dates: start: 20180604
  2. OCREVUS [Suspect]
     Active Substance: OCRELIZUMAB
     Route: 042
  3. OCREVUS [Suspect]
     Active Substance: OCRELIZUMAB
     Indication: RELAPSING-REMITTING MULTIPLE SCLEROSIS
     Route: 042
     Dates: start: 20180604
  4. SOLU?MEDROL [Suspect]
     Active Substance: METHYLPREDNISOLONE SODIUM SUCCINATE
     Dosage: REACTION: FEELING MORE IMPATIENT, HAS A CHANGING MOOD, CRIES WITHOUT REASON
     Route: 042

REACTIONS (14)
  - Neuralgia [Not Recovered/Not Resolved]
  - Infusion related reaction [Recovered/Resolved]
  - Limb discomfort [Recovered/Resolved]
  - Nausea [Recovered/Resolved]
  - Peripheral swelling [Recovered/Resolved]
  - Crying [Recovered/Resolved]
  - Impatience [Not Recovered/Not Resolved]
  - Mood altered [Not Recovered/Not Resolved]
  - Fatigue [Recovered/Resolved]
  - Irritability [Recovered/Resolved]
  - Pain in extremity [Recovered/Resolved]
  - Oropharyngeal pain [Recovered/Resolved]
  - Burning sensation [Not Recovered/Not Resolved]
  - Paraesthesia [Not Recovered/Not Resolved]

NARRATIVE: CASE EVENT DATE: 20180604
